FAERS Safety Report 9941467 (Version 1)
Quarter: 2014Q1

REPORT INFORMATION
  Report Type: Report from Study
  Country: US (occurrence: US)
  Receive Date: 20140303
  Receipt Date: 20140303
  Transmission Date: 20141002
  Serious: No
  Sender: FDA-Public Use
  Company Number: US-ABBVIE-13P-163-1042444-00

PATIENT
  Age: 51 Year
  Sex: Female

DRUGS (15)
  1. HUMIRA [Suspect]
     Indication: CROHN^S DISEASE
     Dates: start: 201209
  2. GABAPENTIN [Suspect]
     Indication: VISION BLURRED
  3. ALIGN [Concomitant]
     Indication: PRODUCT USED FOR UNKNOWN INDICATION
     Dosage: DAILY
  4. OMEPRAZOLE [Concomitant]
     Indication: GASTROOESOPHAGEAL REFLUX DISEASE
     Dosage: 40 MG DAILY
  5. IMMODIUM [Concomitant]
     Indication: DIARRHOEA
  6. DICYCLOMINE [Concomitant]
     Indication: MUSCLE SPASMS
  7. DILTIAZEM [Concomitant]
     Indication: TACHYCARDIA
     Dosage: 120/24 MG
  8. VITAMIN B12 [Concomitant]
     Indication: VITAMIN B12 DEFICIENCY
  9. VITAMIN D [Concomitant]
     Indication: VITAMIN D DEFICIENCY
  10. BIOTIN [Concomitant]
     Indication: NUTRITIONAL SUPPLEMENTATION
  11. PERCOCET [Concomitant]
     Indication: PAIN
  12. PROMETHAZINE [Concomitant]
     Indication: NAUSEA
  13. ZOFRAN [Concomitant]
     Indication: NAUSEA
  14. ALPRAZOLAM [Concomitant]
     Indication: ANXIETY
  15. CALCIUM [Concomitant]

REACTIONS (9)
  - Abdominal pain [Not Recovered/Not Resolved]
  - Stress [Not Recovered/Not Resolved]
  - Vision blurred [Not Recovered/Not Resolved]
  - Diplopia [Not Recovered/Not Resolved]
  - Sinus congestion [Not Recovered/Not Resolved]
  - Respiratory tract congestion [Not Recovered/Not Resolved]
  - Rhinorrhoea [Not Recovered/Not Resolved]
  - Cough [Not Recovered/Not Resolved]
  - Drug dose omission [Not Recovered/Not Resolved]
